FAERS Safety Report 4621311-0 (Version None)
Quarter: 2005Q1

REPORT INFORMATION
  Report Type: 
  Country: None (occurrence: None)
  Receive Date: 20050323
  Receipt Date: 20050323
  Transmission Date: 20050727
  Serious: Yes (Life-Threatening)
  Sender: FDA-Public Use
  Company Number: None

PATIENT
  Age: 25 Year
  Sex: Male
  Weight: 50.3493 kg

DRUGS (1)
  1. ZITHROMAX [Suspect]
     Dosage: 500 MG IV  Q 24 HRS
     Route: 042
     Dates: start: 20041210, end: 20041211

REACTIONS (3)
  - ANXIETY [None]
  - CARDIO-RESPIRATORY ARREST [None]
  - WHEEZING [None]
